FAERS Safety Report 4428587-3 (Version None)
Quarter: 2004Q3

REPORT INFORMATION
  Report Type: 
  Country: None (occurrence: None)
  Receive Date: 20040813
  Receipt Date: 20040729
  Transmission Date: 20050211
  Serious: No
  Sender: FDA-Public Use
  Company Number: 2004SE04345

PATIENT
  Age: 59 Year
  Sex: Female
  Weight: 77 kg

DRUGS (8)
  1. ARIMIDEX [Suspect]
     Indication: BREAST CANCER
     Dosage: 1 MG QD PO
     Route: 048
     Dates: start: 20040414, end: 20040721
  2. TRAMAL RETARD [Concomitant]
  3. CEFTAZIDIM [Concomitant]
  4. ACETAMINOPHEN [Concomitant]
  5. RADIOTHERAPY [Concomitant]
  6. CYCLOFOSFAMIDE [Concomitant]
  7. TAMOXIFEN [Concomitant]
  8. OXYGEN TREATMENT [Concomitant]

REACTIONS (1)
  - HIRSUTISM [None]
